FAERS Safety Report 5890003-2 (Version None)
Quarter: 2008Q3

REPORT INFORMATION
  Report Type: 
  Country: None (occurrence: None)
  Receive Date: 20080919
  Receipt Date: 20080912
  Transmission Date: 20090109
  Serious: Yes (Other)
  Sender: FDA-Public Use
  Company Number: US-PFIZER INC-2008039142

PATIENT
  Sex: Female
  Weight: 77.272 kg

DRUGS (12)
  1. EXUBERA [Suspect]
     Indication: TYPE 2 DIABETES MELLITUS
     Dates: start: 20070401, end: 20080401
  2. TRANXENE [Concomitant]
     Indication: PANIC DISORDER
  3. EFFEXOR [Concomitant]
  4. PLAVIX [Concomitant]
  5. ALL OTHER THERAPEUTIC PRODUCTS [Concomitant]
  6. LANTUS [Concomitant]
  7. FUROSEMIDE [Concomitant]
  8. CLONIDINE [Concomitant]
  9. LIPITOR [Concomitant]
  10. CENTRUM SILVER [Concomitant]
  11. ACETYL SALICYLIC ACID COMPOUND TAB [Concomitant]
  12. CALCIUM GLUCONATE [Concomitant]

REACTIONS (6)
  - BLOOD GLUCOSE INCREASED [None]
  - CHEST DISCOMFORT [None]
  - DYSPNOEA [None]
  - RASH ERYTHEMATOUS [None]
  - SWELLING [None]
  - WEIGHT INCREASED [None]
